FAERS Safety Report 17346015 (Version 1)
Quarter: 2020Q1

REPORT INFORMATION
  Report Type: Spontaneous
  Country: US (occurrence: US)
  Receive Date: 20200129
  Receipt Date: 20200129
  Transmission Date: 20200409
  Serious: Yes (Death, Hospitalization)
  Sender: FDA-Public Use
  Company Number: US-JNJFOC-20200138122

PATIENT
  Age: 58 Year
  Sex: Female

DRUGS (4)
  1. INSULIN DETEMIR [Suspect]
     Active Substance: INSULIN DETEMIR
     Indication: PRODUCT USED FOR UNKNOWN INDICATION
     Route: 051
  2. ULTRAM [Suspect]
     Active Substance: TRAMADOL HYDROCHLORIDE
     Route: 048
  3. ULTRAM [Suspect]
     Active Substance: TRAMADOL HYDROCHLORIDE
     Indication: PRODUCT USED FOR UNKNOWN INDICATION
     Route: 051
  4. INSULIN DETEMIR [Suspect]
     Active Substance: INSULIN DETEMIR
     Route: 065

REACTIONS (3)
  - Completed suicide [Fatal]
  - Intentional product use issue [Fatal]
  - Toxicity to various agents [Fatal]
